FAERS Safety Report 10924807 (Version 2)
Quarter: 2015Q2

REPORT INFORMATION
  Report Type: Spontaneous
  Country: US (occurrence: US)
  Receive Date: 20150318
  Receipt Date: 20150524
  Transmission Date: 20150821
  Serious: No
  Sender: FDA-Public Use
  Company Number: US-JNJFOC-20120911002

PATIENT
  Age: 30 Year
  Sex: Female
  Weight: 45.36 kg

DRUGS (3)
  1. SINGULAIR [Concomitant]
     Active Substance: MONTELUKAST SODIUM
     Indication: LUNG DISORDER
     Route: 065
  2. NIZORAL A-D [Suspect]
     Active Substance: KETOCONAZOLE
     Route: 061
  3. NIZORAL A-D [Suspect]
     Active Substance: KETOCONAZOLE
     Indication: ACNE
     Route: 061

REACTIONS (2)
  - Product use issue [Unknown]
  - Inappropriate schedule of drug administration [Unknown]
